FAERS Safety Report 9007395 (Version 4)
Quarter: 2014Q1

REPORT INFORMATION
  Report Type: Spontaneous
  Country: US (occurrence: US)
  Receive Date: 20130110
  Receipt Date: 20140114
  Transmission Date: 20141002
  Serious: Yes (Death, Life-Threatening, Hospitalization, Other)
  Sender: FDA-Public Use
  Company Number: US-MERCK-1301USA004611

PATIENT
  Sex: Female
  Weight: 45.35 kg

DRUGS (10)
  1. JANUVIA [Suspect]
     Indication: PRODUCT USED FOR UNKNOWN INDICATION
     Dosage: 100 MG, QD
     Route: 048
     Dates: start: 20061106, end: 20090402
  2. JANUVIA [Suspect]
     Dosage: 100 MG, QD
     Route: 048
     Dates: start: 20100716, end: 20120809
  3. ACTOS [Concomitant]
     Indication: TYPE 2 DIABETES MELLITUS
  4. METFORMIN [Concomitant]
     Indication: TYPE 2 DIABETES MELLITUS
  5. NOVOLIN [Concomitant]
     Indication: TYPE 2 DIABETES MELLITUS
  6. GLIPIZIDE [Concomitant]
     Indication: TYPE 2 DIABETES MELLITUS
  7. GLIMEPIRIDE [Concomitant]
     Indication: TYPE 2 DIABETES MELLITUS
  8. AMLODIPINE [Concomitant]
     Indication: HYPERTENSION
     Dosage: UNK
     Dates: start: 1993, end: 2013
  9. CYPROHEPTADINE HYDROCHLORIDE [Concomitant]
     Indication: HYPERSENSITIVITY
  10. HYZAAR [Concomitant]
     Indication: TYPE 2 DIABETES MELLITUS

REACTIONS (7)
  - Pancreatic carcinoma [Fatal]
  - Pancreatic cyst [Unknown]
  - Pain [Unknown]
  - Inflammation [Unknown]
  - Vision blurred [Unknown]
  - Transient ischaemic attack [Unknown]
  - Depression [Unknown]
